FAERS Safety Report 8360476-4 (Version None)
Quarter: 2012Q2

REPORT INFORMATION
  Report Type: 
  Country: None (occurrence: None)
  Receive Date: 20120515
  Receipt Date: 20120514
  Transmission Date: 20120825
  Serious: Yes (Death, Hospitalization)
  Sender: FDA-Public Use
  Company Number: US-BAYER-2012-010222

PATIENT
  Age: 19 Year
  Sex: Female
  Weight: 69.388 kg

DRUGS (2)
  1. BEYAZ [Suspect]
     Indication: CONTRACEPTION
     Dosage: UNK
     Dates: start: 20110818, end: 20111215
  2. ACCUTANE [Suspect]
     Indication: ACNE
     Dosage: UNK
     Dates: start: 20110801, end: 20111201

REACTIONS (6)
  - PULMONARY EMBOLISM [None]
  - RESPIRATORY DISTRESS [None]
  - CHEST PAIN [None]
  - SINUS TACHYCARDIA [None]
  - DYSPNOEA [None]
  - OXYGEN SATURATION DECREASED [None]
